FAERS Safety Report 13300885 (Version 3)
Quarter: 2017Q1

REPORT INFORMATION
  Report Type: Report from Study
  Country: ES (occurrence: ES)
  Receive Date: 20170307
  Receipt Date: 20170314
  Transmission Date: 20170428
  Serious: Yes (Death, Other)
  Sender: FDA-Public Use
  Company Number: ES-AUROBINDO-AUR-APL-2017-30628

PATIENT

DRUGS (1)
  1. METFORMIN [Suspect]
     Active Substance: METFORMIN HYDROCHLORIDE
     Indication: TYPE 2 DIABETES MELLITUS
     Route: 065

REACTIONS (2)
  - Lactic acidosis [Fatal]
  - Acute kidney injury [Unknown]
